FAERS Safety Report 24744001 (Version 1)
Quarter: 2024Q4

REPORT INFORMATION
  Report Type: Spontaneous
  Country: US (occurrence: US)
  Receive Date: 20241217
  Receipt Date: 20241217
  Transmission Date: 20250114
  Serious: No
  Sender: Unknown Manufacturer
  Company Number: US-STALCOR-2024-AER-02794

PATIENT
  Age: 7 Year
  Sex: Male
  Weight: 27.3 kg

DRUGS (4)
  1. PEANUT [Suspect]
     Active Substance: PEANUT
     Indication: Skin test
     Dosage: SKIN PRICK TESTING ON BACK
     Dates: start: 20240611
  2. CETIRIZINE [Concomitant]
     Active Substance: CETIRIZINE HYDROCHLORIDE
     Indication: Product used for unknown indication
     Route: 048
  3. BENADRYL [Concomitant]
     Active Substance: DIPHENHYDRAMINE HYDROCHLORIDE
     Indication: Product used for unknown indication
     Dosage: AS NEEDED
  4. EPIPEN [Concomitant]
     Active Substance: EPINEPHRINE
     Indication: Product used for unknown indication

REACTIONS (2)
  - Drug ineffective [Recovered/Resolved]
  - No adverse event [Recovered/Resolved]

NARRATIVE: CASE EVENT DATE: 20240611
